FAERS Safety Report 6808021-6 (Version None)
Quarter: 2010Q2

REPORT INFORMATION
  Report Type: 
  Country: None (occurrence: None)
  Receive Date: 20100629
  Receipt Date: 20090411
  Transmission Date: 20101027
  Serious: No
  Sender: FDA-Public Use
  Company Number: US-PFIZER INC-2009166935

PATIENT
  Sex: Male

DRUGS (10)
  1. TIKOSYN [Suspect]
     Indication: ATRIAL FIBRILLATION
     Dosage: 500 UG, 2X/DAY
     Dates: start: 20081101
  2. TOPROL-XL [Concomitant]
     Indication: HYPERTENSION
     Dosage: UNK
  3. LIPITOR [Concomitant]
     Dosage: UNK
  4. COZAAR [Concomitant]
     Indication: HYPERTENSION
     Dosage: UNK
  5. XANAX [Concomitant]
     Dosage: UNK
  6. NEXIUM [Concomitant]
     Dosage: UNK
  7. MELATONIN [Concomitant]
     Dosage: UNK
  8. CHONDROITIN/GLUCOSAMINE [Concomitant]
     Dosage: UNK
  9. ECOTRIN [Concomitant]
     Dosage: UNK
     Dates: start: 20090101, end: 20090201
  10. WARFARIN SODIUM [Concomitant]
     Dosage: UNK
     Dates: start: 20090203

REACTIONS (2)
  - ATRIAL FIBRILLATION [None]
  - INSOMNIA [None]
